FAERS Safety Report 15782831 (Version 5)
Quarter: 2019Q1

REPORT INFORMATION
  Report Type: Spontaneous
  Country: JP (occurrence: JP)
  Receive Date: 20190102
  Receipt Date: 20190318
  Transmission Date: 20190417
  Serious: Yes (Death, Other)
  Sender: FDA-Public Use
  Company Number: JP-ASTRAZENECA-2018SF71612

PATIENT
  Age: 80 Year
  Sex: Female
  Weight: 40 kg

DRUGS (11)
  1. DENOTAS [Concomitant]
     Active Substance: CALCIUM CARBONATE\CHOLECALCIFEROL\MAGNESIUM CARBONATE
     Indication: OSTEOPOROSIS
     Route: 048
     Dates: start: 20170706
  2. NEXIUM [Concomitant]
     Active Substance: ESOMEPRAZOLE MAGNESIUM
     Indication: GASTROOESOPHAGEAL REFLUX DISEASE
     Route: 048
     Dates: start: 20181102
  3. CODEINE PHOSPHATE [Concomitant]
     Active Substance: CODEINE PHOSPHATE
     Indication: NON-SMALL CELL LUNG CANCER
     Route: 048
     Dates: start: 20180926
  4. RELVAR [Concomitant]
     Active Substance: FLUTICASONE FUROATE\VILANTEROL TRIFENATATE
     Indication: ASTHMA
     Route: 055
     Dates: start: 20181011
  5. MS CONTIN [Concomitant]
     Active Substance: MORPHINE SULFATE
     Indication: NON-SMALL CELL LUNG CANCER
     Route: 048
     Dates: start: 20181228
  6. ENCRUSE [Concomitant]
     Indication: ASTHMA
     Route: 055
     Dates: start: 20181218
  7. TAGRISSO [Suspect]
     Active Substance: OSIMERTINIB
     Indication: NON-SMALL CELL LUNG CANCER
     Route: 048
     Dates: start: 20181101, end: 20181228
  8. AMBROXOL HYDROCHLORIDE [Concomitant]
     Active Substance: AMBROXOL HYDROCHLORIDE
     Indication: NON-SMALL CELL LUNG CANCER
     Route: 048
     Dates: start: 20180926
  9. SULTANOL [Concomitant]
     Active Substance: ALBUTEROL SULFATE
     Indication: ASTHMA
     Dosage: FOR ATTACK
     Route: 055
     Dates: start: 20180926
  10. MAGNESIUM OXIDE. [Concomitant]
     Active Substance: MAGNESIUM OXIDE
     Indication: ASTHMA
     Route: 048
     Dates: start: 20181218
  11. LOXOPROFEN [Concomitant]
     Active Substance: LOXOPROFEN
     Indication: NON-SMALL CELL LUNG CANCER
     Route: 048
     Dates: start: 20181101

REACTIONS (12)
  - Tumour flare [Unknown]
  - Respiratory failure [Fatal]
  - Pulmonary artery stenosis [Unknown]
  - Paronychia [Recovering/Resolving]
  - Dysgeusia [Not Recovered/Not Resolved]
  - Cardiac failure congestive [Unknown]
  - Haemoptysis [Recovered/Resolved]
  - Malignant neoplasm progression [Fatal]
  - Dyspnoea [Unknown]
  - Decreased appetite [Unknown]
  - Malignant pleural effusion [Unknown]
  - Abdominal pain upper [Recovering/Resolving]

NARRATIVE: CASE EVENT DATE: 2018
